FAERS Safety Report 5675950-9 (Version None)
Quarter: 2008Q1

REPORT INFORMATION
  Report Type: 
  Country: None (occurrence: None)
  Receive Date: 20080318
  Receipt Date: 20080312
  Transmission Date: 20080703
  Serious: Yes (Death, Hospitalization)
  Sender: FDA-Public Use
  Company Number: E2020-02434-SPO-US

PATIENT
  Age: 77 Year

DRUGS (12)
  1. ARICEPT [Suspect]
     Indication: CONFUSIONAL STATE
     Dosage: 5 MG, 1 IN 1 D, ORAL
     Route: 048
     Dates: start: 20071001, end: 20071206
  2. HYDROCHLOROTHIAZIDE [Concomitant]
  3. SINGULAIR [Concomitant]
  4. ZOCOR [Concomitant]
  5. SYNTHROID [Concomitant]
  6. KLONOPIN [Concomitant]
  7. ASTELIN [Concomitant]
  8. NASONEX [Concomitant]
  9. ASMANEX TWISTHALER [Concomitant]
  10. TESSALON [Concomitant]
  11. DIPHENHYDRAMINE HCL [Concomitant]
  12. ASPIRIN [Concomitant]

REACTIONS (4)
  - COUGH [None]
  - HAEMATEMESIS [None]
  - HAEMOPTYSIS [None]
  - IDIOPATHIC THROMBOCYTOPENIC PURPURA [None]
